FAERS Safety Report 24974262 (Version 1)
Quarter: 2025Q1

REPORT INFORMATION
  Report Type: Spontaneous
  Country: US (occurrence: US)
  Receive Date: 20250217
  Receipt Date: 20250217
  Transmission Date: 20250409
  Serious: No
  Sender: ALEXION PHARMACEUTICALS
  Company Number: US-ASTRAZENECA-202502USA009626US

PATIENT
  Age: 77 Year
  Weight: 99.3 kg

DRUGS (11)
  1. BEVESPI AEROSPHERE [Suspect]
     Active Substance: FORMOTEROL FUMARATE\GLYCOPYRROLATE
     Indication: Product used for unknown indication
     Route: 065
  2. OMEPRAZOLE [Suspect]
     Active Substance: OMEPRAZOLE
     Route: 065
  3. TREPROSTINIL SODIUM [Suspect]
     Active Substance: TREPROSTINIL SODIUM
     Indication: Pulmonary arterial hypertension
     Dosage: 78 MICROGRAM, QID
  4. AZATHIOPRINE [Concomitant]
     Active Substance: AZATHIOPRINE
  5. FOLIC ACID [Concomitant]
     Active Substance: FOLIC ACID
  6. REFRESH CELLUVISC [Concomitant]
     Active Substance: CARBOXYMETHYLCELLULOSE SODIUM
  7. METHYLPREDNISOLONE [Concomitant]
     Active Substance: METHYLPREDNISOLONE
  8. ALBUTEROL SULFATE [Concomitant]
     Active Substance: ALBUTEROL SULFATE
  9. SILDENAFIL CITRATE [Concomitant]
     Active Substance: SILDENAFIL CITRATE
  10. OXYGEN [Concomitant]
     Active Substance: OXYGEN
  11. CORTISONE [Concomitant]
     Active Substance: CORTISONE

REACTIONS (5)
  - Chills [Unknown]
  - Candida infection [Unknown]
  - Asthenia [Unknown]
  - Arthralgia [Unknown]
  - Off label use [Unknown]
